FAERS Safety Report 21713066 (Version 1)
Quarter: 2022Q4

REPORT INFORMATION
  Report Type: Spontaneous
  Country: US (occurrence: US)
  Receive Date: 20221212
  Receipt Date: 20221212
  Transmission Date: 20230113
  Serious: No
  Sender: FDA-Public Use
  Company Number: US-SANOFI-01399110

PATIENT
  Sex: Male

DRUGS (1)
  1. TOUJEO MAX [Suspect]
     Active Substance: INSULIN GLARGINE
     Dosage: 80 UNITS IN THE MORNING AND 75 UNITS IN THE EVENING

REACTIONS (2)
  - Product prescribing error [Unknown]
  - Inappropriate schedule of product administration [Unknown]
